FAERS Safety Report 4311578-0 (Version None)
Quarter: 2004Q1

REPORT INFORMATION
  Report Type: 
  Country: None (occurrence: None)
  Receive Date: 20040302
  Receipt Date: 20031118
  Transmission Date: 20041129
  Serious: No
  Sender: FDA-Public Use
  Company Number: 200325173BWH

PATIENT
  Age: 55 Year
  Sex: Male

DRUGS (8)
  1. LEVITRA [Suspect]
     Indication: ERECTILE DYSFUNCTION
     Dosage: 20 MG, ORAL; 40 MG, TOTAL DAILY, ORAL; 60 MG TOTAL DAILY, ORAL
     Route: 048
     Dates: start: 20030901
  2. LEVITRA [Suspect]
     Indication: ERECTILE DYSFUNCTION
     Dosage: 20 MG, ORAL; 40 MG, TOTAL DAILY, ORAL; 60 MG TOTAL DAILY, ORAL
     Route: 048
     Dates: start: 20031029
  3. LEVITRA [Suspect]
     Indication: ERECTILE DYSFUNCTION
     Dosage: 20 MG, ORAL; 40 MG, TOTAL DAILY, ORAL; 60 MG TOTAL DAILY, ORAL
     Route: 048
     Dates: start: 20031105
  4. VIAGRA [Concomitant]
  5. ALLEGRA-D [Concomitant]
  6. FUROSEMIDE [Concomitant]
  7. MULTI-VITAMIN [Concomitant]
  8. DHEA [Concomitant]

REACTIONS (3)
  - DRUG INEFFECTIVE [None]
  - ERECTILE DYSFUNCTION [None]
  - NO ADVERSE DRUG EFFECT [None]
